FAERS Safety Report 14957975 (Version 1)
Quarter: 2018Q2

REPORT INFORMATION
  Report Type: Report from Study
  Country: US (occurrence: US)
  Receive Date: 20180531
  Receipt Date: 20180531
  Transmission Date: 20180711
  Serious: Yes (Other)
  Sender: FDA-Public Use
  Company Number: US-JNJFOC-20180539604

PATIENT
  Sex: Male

DRUGS (1)
  1. IMBRUVICA [Suspect]
     Active Substance: IBRUTINIB
     Indication: CHRONIC LYMPHOCYTIC LEUKAEMIA
     Route: 048
     Dates: start: 20180504, end: 201805

REACTIONS (6)
  - Dialysis [Unknown]
  - Headache [Unknown]
  - Fatigue [Unknown]
  - Haematuria [Recovered/Resolved]
  - Dysgeusia [Unknown]
  - Blood pressure decreased [Unknown]
